FAERS Safety Report 17435349 (Version 1)
Quarter: 2020Q1

REPORT INFORMATION
  Report Type: Spontaneous
  Country: FR (occurrence: FR)
  Receive Date: 20200219
  Receipt Date: 20200219
  Transmission Date: 20200409
  Serious: Yes (Other)
  Sender: FDA-Public Use
  Company Number: FR-CELGENEUS-FRA-20200205798

PATIENT
  Age: 59 Year
  Sex: Male
  Weight: 106.3 kg

DRUGS (1)
  1. OTEZLA [Suspect]
     Active Substance: APREMILAST
     Indication: PSORIASIS
     Dosage: 2 DOSAGE FORMS
     Route: 048
     Dates: start: 20190323

REACTIONS (2)
  - Depression [Not Recovered/Not Resolved]
  - Burnout syndrome [Not Recovered/Not Resolved]

NARRATIVE: CASE EVENT DATE: 201912
